FAERS Safety Report 6424533-1 (Version None)
Quarter: 2009Q4

REPORT INFORMATION
  Report Type: 
  Country: None (occurrence: None)
  Receive Date: 20091029
  Receipt Date: 20091015
  Transmission Date: 20100525
  Serious: Yes (Hospitalization)
  Sender: FDA-Public Use
  Company Number: 2008EU001444

PATIENT
  Age: 22 Month
  Sex: Female

DRUGS (4)
  1. PROGRAF [Suspect]
     Indication: LIVER TRANSPLANT
     Dosage: /D, ORAL
     Route: 048
     Dates: start: 20060401, end: 20070903
  2. CELLCEPT [Suspect]
     Indication: LIVER TRANSPLANT
     Dosage: UNKNOWN /D, ORAL
     Route: 048
     Dates: start: 20060401
  3. CORTICOSTEROIDS [Concomitant]
  4. ASPEGIC 1000 [Concomitant]

REACTIONS (18)
  - ANGIOEDEMA [None]
  - DISEASE RECURRENCE [None]
  - DYSPNOEA [None]
  - FOOD ALLERGY [None]
  - GRANULOMA [None]
  - LARYNGEAL OEDEMA [None]
  - LARYNGITIS [None]
  - LIP SWELLING [None]
  - MULTIPLE ALLERGIES [None]
  - NASAL CONGESTION [None]
  - NASAL OEDEMA [None]
  - PHARYNGEAL OEDEMA [None]
  - PRODUCTIVE COUGH [None]
  - RESPIRATORY DISORDER [None]
  - RESPIRATORY DISTRESS [None]
  - RHINITIS [None]
  - SNORING [None]
  - URTICARIA [None]
